FAERS Safety Report 25329087 (Version 1)
Quarter: 2025Q2

REPORT INFORMATION
  Report Type: Spontaneous
  Country: SK (occurrence: SK)
  Receive Date: 20250519
  Receipt Date: 20250519
  Transmission Date: 20250716
  Serious: Yes (Other)
  Sender: MERCK SHARP & DOHME LLC
  Company Number: SK-009507513-2286049

PATIENT
  Age: 69 Year
  Sex: Male
  Weight: 88 kg

DRUGS (2)
  1. PEMBROLIZUMAB [Suspect]
     Active Substance: PEMBROLIZUMAB
     Indication: Metastatic malignant melanoma
     Dates: start: 202203, end: 20241210
  2. PERINDOPRIL [Concomitant]
     Active Substance: PERINDOPRIL

REACTIONS (12)
  - Malignant neoplasm progression [Unknown]
  - Lung infiltration [Recovering/Resolving]
  - Lymphadenopathy mediastinal [Recovering/Resolving]
  - Streptococcus test positive [Unknown]
  - Lung diffusion test abnormal [Recovering/Resolving]
  - Upper respiratory tract infection [Unknown]
  - Immune-mediated lung disease [Unknown]
  - Restrictive pulmonary disease [Recovering/Resolving]
  - Thrombocytopenia [Recovered/Resolved]
  - Organising pneumonia [Unknown]
  - Toxicity to various agents [Unknown]
  - Adverse event [Unknown]

NARRATIVE: CASE EVENT DATE: 20241201
